FAERS Safety Report 8320244-6 (Version None)
Quarter: 2012Q2

REPORT INFORMATION
  Report Type: 
  Country: None (occurrence: None)
  Receive Date: 20120430
  Receipt Date: 20120424
  Transmission Date: 20120825
  Serious: No
  Sender: FDA-Public Use
  Company Number: US-BIOGENIDEC-2012BI014267

PATIENT
  Age: 57 Year
  Sex: Female

DRUGS (1)
  1. AVONEX [Suspect]
     Indication: MULTIPLE SCLEROSIS
     Route: 030
     Dates: start: 20090101

REACTIONS (7)
  - PRURITUS [None]
  - ASTHENIA [None]
  - SKIN LESION [None]
  - ALOPECIA [None]
  - SCAB [None]
  - SLUGGISHNESS [None]
  - PRURITUS GENERALISED [None]
